FAERS Safety Report 25665154 (Version 1)
Quarter: 2025Q3

REPORT INFORMATION
  Report Type: Other
  Country: US (occurrence: US)
  Receive Date: 20250811
  Receipt Date: 20250811
  Transmission Date: 20251021
  Serious: Yes (Hospitalization, Other)
  Sender: XGEN PHARMACEUTICALS DJB, INC.
  Company Number: US-XGen Pharmaceuticals DJB, Inc.-2182251

PATIENT
  Age: 50 Year
  Sex: Male

DRUGS (1)
  1. LEVETIRACETAM [Suspect]
     Active Substance: LEVETIRACETAM

REACTIONS (2)
  - Vanishing bile duct syndrome [Unknown]
  - Cholestatic liver injury [Not Recovered/Not Resolved]
